FAERS Safety Report 7215890-7 (Version None)
Quarter: 2011Q1

REPORT INFORMATION
  Report Type: 
  Country: None (occurrence: None)
  Receive Date: 20110104
  Receipt Date: 20110104
  Transmission Date: 20110831
  Serious: Yes (Other)
  Sender: FDA-Public Use
  Company Number: None

PATIENT
  Age: 47 Year
  Sex: Female
  Weight: 57.1532 kg

DRUGS (2)
  1. VIT B COMPLEX [Concomitant]
  2. PRISTIQ [Suspect]
     Indication: DEPRESSION
     Dosage: 50 MG ONCE A DAY PO
     Route: 048
     Dates: start: 20100914, end: 20101221

REACTIONS (4)
  - NAUSEA [None]
  - PRURITUS GENERALISED [None]
  - HEADACHE [None]
  - INSOMNIA [None]
